FAERS Safety Report 22231337 (Version 2)
Quarter: 2023Q2

REPORT INFORMATION
  Report Type: Spontaneous
  Country: US (occurrence: US)
  Receive Date: 20230420
  Receipt Date: 20230613
  Transmission Date: 20230721
  Serious: No
  Sender: FDA-Public Use
  Company Number: US-SA-SAC20230419000485

PATIENT
  Age: 58 Year
  Sex: Male
  Weight: 83.91 kg

DRUGS (20)
  1. DUPIXENT [Suspect]
     Active Substance: DUPILUMAB
     Indication: Nasal polyps
     Dosage: 300 MG, QOW
     Route: 058
     Dates: start: 20220921
  2. DUPIXENT [Suspect]
     Active Substance: DUPILUMAB
     Indication: Asthma
  3. VITAMIN E [Concomitant]
     Active Substance: .ALPHA.-TOCOPHEROL
  4. MELATONIN [Concomitant]
     Active Substance: MELATONIN
  5. VITAMIN D3 [Concomitant]
     Active Substance: CHOLECALCIFEROL
  6. ZINC [Concomitant]
     Active Substance: ZINC
  7. ZYRTEC [Concomitant]
     Active Substance: CETIRIZINE HYDROCHLORIDE
  8. FLUTICASONE PROPIONATE [Concomitant]
     Active Substance: FLUTICASONE PROPIONATE
  9. DULERA [Concomitant]
     Active Substance: FORMOTEROL FUMARATE DIHYDRATE\MOMETASONE FUROATE
  10. TRAZODONE HCL [Concomitant]
     Active Substance: TRAZODONE HYDROCHLORIDE
  11. TIZANIDINE HYDROCHLORIDE [Concomitant]
     Active Substance: TIZANIDINE HYDROCHLORIDE
  12. QUERCETIN [Concomitant]
     Active Substance: QUERCETIN
  13. TAMSULOSIN HYDROCHLORIDE [Concomitant]
     Active Substance: TAMSULOSIN HYDROCHLORIDE
  14. PRIMIDONE [Concomitant]
     Active Substance: PRIMIDONE
  15. PAROXETINE HYDROCHLORIDE [Concomitant]
     Active Substance: PAROXETINE HYDROCHLORIDE
  16. FINASTERIDE [Concomitant]
     Active Substance: FINASTERIDE
  17. SIMVASTATIN [Concomitant]
     Active Substance: SIMVASTATIN
  18. CLONAZEPAM [Concomitant]
     Active Substance: CLONAZEPAM
  19. BUPROPION HYDROCHLORIDE [Concomitant]
     Active Substance: BUPROPION HYDROCHLORIDE
     Dosage: 150MG, 12H
  20. ACETAMINOPHEN\HYDROCODONE [Concomitant]
     Active Substance: ACETAMINOPHEN\HYDROCODONE

REACTIONS (9)
  - Nasal congestion [Unknown]
  - Condition aggravated [Unknown]
  - Product dose omission issue [Unknown]
  - Nasal polyps [Unknown]
  - Headache [Unknown]
  - Condition aggravated [Unknown]
  - Nasal obstruction [Unknown]
  - Product dose omission issue [Unknown]
  - Asthma [Unknown]
